FAERS Safety Report 4789803-1 (Version None)
Quarter: 2005Q4

REPORT INFORMATION
  Report Type: 
  Country: None (occurrence: None)
  Receive Date: 20051006
  Receipt Date: 20050926
  Transmission Date: 20060501
  Serious: Yes (Death, Life-Threatening, Hospitalization)
  Sender: FDA-Public Use
  Company Number: FR-GLAXOSMITHKLINE-B0394953A

PATIENT
  Age: 44 Year
  Sex: Male

DRUGS (5)
  1. EPIVIR [Suspect]
     Indication: HIV INFECTION
     Dosage: 300MG PER DAY
     Route: 048
     Dates: start: 20040816, end: 20050901
  2. VIDEX [Suspect]
     Indication: HIV INFECTION
     Dosage: 400MG PER DAY
     Route: 048
     Dates: start: 20040816, end: 20050901
  3. VIREAD [Suspect]
     Indication: HIV INFECTION
     Route: 048
     Dates: start: 20040816, end: 20050901
  4. PEGASYS [Suspect]
     Dosage: 180MCG PER DAY
     Route: 058
     Dates: start: 20050627, end: 20050901
  5. COPEGUS [Suspect]
     Dosage: 1G PER DAY
     Route: 048
     Dates: start: 20050627, end: 20050901

REACTIONS (23)
  - ACID BASE BALANCE ABNORMAL [None]
  - ASCITES [None]
  - ASTHENIA [None]
  - BLOOD LACTIC ACID INCREASED [None]
  - DEPRESSED LEVEL OF CONSCIOUSNESS [None]
  - DRUG INTERACTION [None]
  - EPISTAXIS [None]
  - GENERAL PHYSICAL HEALTH DETERIORATION [None]
  - HEADACHE [None]
  - HEPATIC CIRRHOSIS [None]
  - HEPATIC ENCEPHALOPATHY [None]
  - JAUNDICE [None]
  - LACTIC ACIDOSIS [None]
  - LIVER FUNCTION TEST ABNORMAL [None]
  - MENINGITIS [None]
  - MOVEMENT DISORDER [None]
  - MULTI-ORGAN FAILURE [None]
  - OEDEMA PERIPHERAL [None]
  - PROTHROMBIN LEVEL DECREASED [None]
  - PYREXIA [None]
  - RENAL FAILURE [None]
  - SCIATICA [None]
  - TACHYPNOEA [None]
